FAERS Safety Report 8487742-6 (Version None)
Quarter: 2012Q3

REPORT INFORMATION
  Report Type: 
  Country: None (occurrence: None)
  Receive Date: 20120705
  Receipt Date: 20120629
  Transmission Date: 20120928
  Serious: Yes (Other)
  Sender: FDA-Public Use
  Company Number: US-BAYER-2012-064885

PATIENT
  Sex: Female

DRUGS (2)
  1. YAZ [Suspect]
     Dosage: UNK
     Dates: start: 20090101
  2. YASMIN [Suspect]
     Dosage: UNK
     Dates: start: 20090101

REACTIONS (6)
  - DEEP VEIN THROMBOSIS [None]
  - PSYCHOLOGICAL TRAUMA [None]
  - INJURY [None]
  - PAIN [None]
  - EMOTIONAL DISTRESS [None]
  - ANXIETY [None]
